FAERS Safety Report 4930591-3 (Version None)
Quarter: 2006Q1

REPORT INFORMATION
  Report Type: 
  Country: None (occurrence: None)
  Receive Date: 20060302
  Receipt Date: 20051003
  Transmission Date: 20060701
  Serious: Yes (Death, Hospitalization)
  Sender: FDA-Public Use
  Company Number: US-MERCK-0510USA02593

PATIENT
  Age: 78 Year
  Sex: Female
  Weight: 48 kg

DRUGS (2)
  1. VIOXX [Suspect]
     Indication: ARTHRITIS
     Route: 048
  2. VIOXX [Suspect]
     Indication: BACK PAIN
     Route: 048

REACTIONS (17)
  - ACUTE MYOCARDIAL INFARCTION [None]
  - ANGIONEUROTIC OEDEMA [None]
  - ANGIOPATHY [None]
  - BRADYCARDIA [None]
  - CARDIAC FAILURE CONGESTIVE [None]
  - CARDIOMEGALY [None]
  - CARDIOVASCULAR DISORDER [None]
  - CORONARY ARTERY DISEASE [None]
  - HYPERHIDROSIS [None]
  - HYPOTHYROIDISM [None]
  - HYPOVENTILATION [None]
  - OSTEOARTHRITIS [None]
  - PALLOR [None]
  - PULMONARY OEDEMA [None]
  - RHEUMATOID ARTHRITIS [None]
  - RIB FRACTURE [None]
  - VENTRICULAR TACHYCARDIA [None]
